FAERS Safety Report 8017953-5 (Version None)
Quarter: 2012Q1

REPORT INFORMATION
  Report Type: 
  Country: None (occurrence: None)
  Receive Date: 20120103
  Receipt Date: 20111227
  Transmission Date: 20120608
  Serious: No
  Sender: FDA-Public Use
  Company Number: US-JNJFOC-20110801111

PATIENT
  Sex: Female
  Weight: 54.43 kg

DRUGS (4)
  1. DURAGESIC-100 [Suspect]
     Indication: PAIN
     Route: 062
     Dates: start: 20110101
  2. DURAGESIC-100 [Suspect]
     Route: 062
     Dates: start: 20110101
  3. DURAGESIC-100 [Suspect]
     Route: 062
     Dates: start: 20110501
  4. DURAGESIC-100 [Suspect]
     Indication: CANCER PAIN
     Route: 062
     Dates: start: 20110501

REACTIONS (3)
  - WRONG TECHNIQUE IN DRUG USAGE PROCESS [None]
  - PRODUCT ADHESION ISSUE [None]
  - DRUG INEFFECTIVE [None]
